FAERS Safety Report 21933506 (Version 1)
Quarter: 2023Q1

REPORT INFORMATION
  Report Type: Spontaneous
  Country: SA (occurrence: SA)
  Receive Date: 20230201
  Receipt Date: 20230201
  Transmission Date: 20230418
  Serious: Yes (Other)
  Sender: FDA-Public Use
  Company Number: SA-SLATE RUN PHARMACEUTICALS-23SA001487

PATIENT

DRUGS (12)
  1. VORICONAZOLE [Suspect]
     Active Substance: VORICONAZOLE
     Indication: Infective keratitis
     Dosage: UNK UNK, EVERY HOUR
     Route: 003
  2. VORICONAZOLE [Suspect]
     Active Substance: VORICONAZOLE
     Dosage: 20 MILLIGRAM, BID
  3. GANCICLOVIR [Suspect]
     Active Substance: GANCICLOVIR
     Indication: Infective keratitis
     Dosage: UNK UNK, 5/DAY
     Route: 003
  4. VANCOMYCIN HYDROCHLORIDE [Suspect]
     Active Substance: VANCOMYCIN HYDROCHLORIDE
     Indication: Infective keratitis
     Dosage: 1 MG/ 0.1 ML
  5. CEFAZOLIN [Concomitant]
     Active Substance: CEFAZOLIN
     Indication: Infective keratitis
     Dosage: UNK, EVERY HOUR
  6. CEFTAZIDIME [Concomitant]
     Active Substance: CEFTAZIDIME
     Indication: Infective keratitis
     Dosage: 50 MG/ML
  7. CEFTAZIDIME [Concomitant]
     Active Substance: CEFTAZIDIME
     Dosage: 2.25 MG / 0.1 ML
  8. VALTREX [Concomitant]
     Active Substance: VALACYCLOVIR HYDROCHLORIDE
     Indication: Infective keratitis
     Dosage: 500 MILLIGRAM, TID
  9. NATAMYCIN [Concomitant]
     Active Substance: NATAMYCIN
     Indication: Infective keratitis
     Dosage: UNK, Q 2 HR
     Route: 003
  10. AMPHOTERICIN B [Concomitant]
     Active Substance: AMPHOTERICIN B
     Indication: Infective keratitis
     Dosage: 0.15 % PERCENT
     Route: 031
  11. AMPHOTERICIN B [Concomitant]
     Active Substance: AMPHOTERICIN B
     Dosage: 5 MICROGRAMS/0.1 MILLILITER
  12. OTHER ANTIBACTERIALS [Concomitant]
     Indication: Infective keratitis

REACTIONS (7)
  - Disease progression [Unknown]
  - Ulcerative keratitis [Unknown]
  - Corneal infiltrates [Unknown]
  - Eye pain [Unknown]
  - Endophthalmitis [Unknown]
  - Retinal thickening [Unknown]
  - Choroidal detachment [Unknown]
